FAERS Safety Report 6734610-3 (Version None)
Quarter: 2010Q2

REPORT INFORMATION
  Report Type: 
  Country: None (occurrence: None)
  Receive Date: 20100519
  Receipt Date: 20100503
  Transmission Date: 20101027
  Serious: Yes (Hospitalization, Other)
  Sender: FDA-Public Use
  Company Number: MC201000137

PATIENT
  Age: 58 Year
  Sex: Male
  Weight: 100 kg

DRUGS (7)
  1. ANGIOMAX [Suspect]
     Indication: ANTIPLATELET THERAPY
     Dosage: 15 ML, BOLUS, INTRAVENOUS; 1.75 MG/KG, HR, INTRAVENOUS; 35 ML, HR, INTRAVENOUS
     Route: 042
     Dates: start: 20080124, end: 20080124
  2. ANGIOMAX [Suspect]
     Indication: ANTIPLATELET THERAPY
     Dosage: 15 ML, BOLUS, INTRAVENOUS; 1.75 MG/KG, HR, INTRAVENOUS; 35 ML, HR, INTRAVENOUS
     Route: 042
     Dates: start: 20080222, end: 20080222
  3. ANGIOMAX [Suspect]
     Indication: ANTIPLATELET THERAPY
     Dosage: 15 ML, BOLUS, INTRAVENOUS; 1.75 MG/KG, HR, INTRAVENOUS; 35 ML, HR, INTRAVENOUS
     Route: 042
     Dates: start: 20080124, end: 20100124
  4. ANGIOMAX [Suspect]
     Indication: ANTIPLATELET THERAPY
     Dosage: 15 ML, BOLUS, INTRAVENOUS; 1.75 MG/KG, HR, INTRAVENOUS; 35 ML, HR, INTRAVENOUS
     Route: 042
     Dates: start: 20080222, end: 20100222
  5. ASPIRIN [Concomitant]
  6. PLAVIX [Concomitant]
  7. INTEGRILIN [Concomitant]

REACTIONS (6)
  - ANGINA UNSTABLE [None]
  - CHEST DISCOMFORT [None]
  - COAGULATION TIME PROLONGED [None]
  - DYSPNOEA [None]
  - IN-STENT CORONARY ARTERY RESTENOSIS [None]
  - NO THERAPEUTIC RESPONSE [None]
